FAERS Safety Report 8462581-0 (Version None)
Quarter: 2012Q2

REPORT INFORMATION
  Report Type: 
  Country: None (occurrence: None)
  Receive Date: 20120625
  Receipt Date: 20120504
  Transmission Date: 20120825
  Serious: No
  Sender: FDA-Public Use
  Company Number: US-BAUSCH-2012BL001629

PATIENT
  Age: 33 Year
  Sex: Female

DRUGS (8)
  1. BESIVANCE [Suspect]
     Route: 047
     Dates: start: 20120101, end: 20120101
  2. BESIVANCE [Suspect]
     Indication: POSTOPERATIVE CARE
     Route: 047
     Dates: start: 20120105, end: 20120105
  3. BROMFENAC [Concomitant]
     Indication: PHOTOREFRACTIVE KERATECTOMY
     Route: 047
     Dates: start: 20120105, end: 20120105
  4. PRED FORTE [Concomitant]
     Indication: POSTOPERATIVE CARE
     Route: 047
     Dates: start: 20120105
  5. BROMFENAC [Concomitant]
     Indication: POSTOPERATIVE CARE
     Route: 047
     Dates: start: 20120105
  6. BESIVANCE [Suspect]
     Indication: OFF LABEL USE
     Route: 047
     Dates: start: 20120105, end: 20120105
  7. BESIVANCE [Suspect]
     Route: 047
     Dates: start: 20120101, end: 20120101
  8. PRED FORTE [Concomitant]
     Indication: PHOTOREFRACTIVE KERATECTOMY
     Route: 047
     Dates: start: 20120105, end: 20120105

REACTIONS (2)
  - IMPAIRED HEALING [None]
  - CORNEAL DISORDER [None]
